FAERS Safety Report 13698723 (Version 1)
Quarter: 2017Q2

REPORT INFORMATION
  Report Type: Spontaneous
  Country: US (occurrence: US)
  Receive Date: 20170627
  Receipt Date: 20170627
  Transmission Date: 20170830
  Serious: Yes (Other)
  Sender: FDA-Public Use
  Company Number: None

PATIENT
  Age: 60 Year
  Sex: Male
  Weight: 67.5 kg

DRUGS (1)
  1. PRAVACHOL [Suspect]
     Active Substance: PRAVASTATIN SODIUM
     Indication: HYPERCHOLESTEROLAEMIA
     Dosage: ?          OTHER DOSE:MG;?
     Route: 048
     Dates: start: 20170301, end: 20170531

REACTIONS (4)
  - Product packaging issue [None]
  - Blood creatine phosphokinase increased [None]
  - Rhabdomyolysis [None]
  - Product counterfeit [None]

NARRATIVE: CASE EVENT DATE: 20170529
